FAERS Safety Report 18570930 (Version 3)
Quarter: 2022Q1

REPORT INFORMATION
  Report Type: Spontaneous
  Country: US (occurrence: US)
  Receive Date: 20201202
  Receipt Date: 20220311
  Transmission Date: 20220423
  Serious: No
  Sender: FDA-Public Use
  Company Number: US-CYCLE PHARMACEUTICALS LTD-2020-CYC-000029

PATIENT
  Sex: Female

DRUGS (2)
  1. NITISINONE [Suspect]
     Active Substance: NITISINONE
     Indication: Tyrosinaemia
     Dosage: 2 MG, BID
     Route: 048
     Dates: start: 20200514
  2. GABAPENTIN [Concomitant]
     Active Substance: GABAPENTIN
     Indication: Product used for unknown indication
     Dosage: UNK

REACTIONS (3)
  - Rash [Unknown]
  - Rash [Unknown]
  - Insomnia [Unknown]
